FAERS Safety Report 15306341 (Version 1)
Quarter: 2018Q3

REPORT INFORMATION
  Report Type: Spontaneous
  Country: US (occurrence: US)
  Receive Date: 20180810
  Receipt Date: 20180810
  Transmission Date: 20181010
  Serious: Yes (Disabling)
  Sender: FDA-Public Use
  Company Number: None

PATIENT
  Age: 34 Year
  Sex: Male
  Weight: 99 kg

DRUGS (4)
  1. WELLBUTRIN [Concomitant]
     Active Substance: BUPROPION HYDROCHLORIDE
  2. KRATOM [Suspect]
     Active Substance: MITRAGYNINE\HERBALS
     Indication: DRUG DEPENDENCE
     Route: 048
     Dates: start: 20170101, end: 20180808
  3. EFFEXOR [Concomitant]
     Active Substance: VENLAFAXINE HYDROCHLORIDE
  4. BUSPIRON [Concomitant]
     Active Substance: BUSPIRONE HYDROCHLORIDE

REACTIONS (12)
  - Restless legs syndrome [None]
  - Pain [None]
  - Hyperhidrosis [None]
  - Acne [None]
  - Vomiting [None]
  - Constipation [None]
  - Anxiety [None]
  - Depression [None]
  - Drug dependence [None]
  - Drug withdrawal syndrome [None]
  - Dehydration [None]
  - Agitation [None]

NARRATIVE: CASE EVENT DATE: 20180807
